FAERS Safety Report 13899687 (Version 1)
Quarter: 2017Q3

REPORT INFORMATION
  Report Type: Spontaneous
  Country: US (occurrence: None)
  Receive Date: 20170818
  Receipt Date: 20170818
  Transmission Date: 20171127
  Serious: Yes (Hospitalization)
  Sender: FDA-Public Use
  Company Number: None

PATIENT
  Age: 68 Year
  Sex: Male

DRUGS (2)
  1. RIVAROXBAN [Suspect]
     Active Substance: RIVAROXABAN
     Route: 048
     Dates: start: 20170226, end: 20170330
  2. CLOPIDOGREL [Suspect]
     Active Substance: CLOPIDOGREL BISULFATE
     Route: 048
     Dates: start: 20170220

REACTIONS (3)
  - Epistaxis [None]
  - Haematemesis [None]
  - Haemoptysis [None]

NARRATIVE: CASE EVENT DATE: 20170330
